FAERS Safety Report 11055811 (Version 2)
Quarter: 2015Q2

REPORT INFORMATION
  Report Type: Report from Study
  Country: VE (occurrence: VE)
  Receive Date: 20150422
  Receipt Date: 20150511
  Transmission Date: 20150821
  Serious: Yes (Hospitalization)
  Sender: FDA-Public Use
  Company Number: VE-ABBVIE-15K-178-1377965-00

PATIENT
  Age: 40 Year
  Sex: Female

DRUGS (1)
  1. HUMIRA [Suspect]
     Active Substance: ADALIMUMAB
     Indication: RHEUMATOID ARTHRITIS
     Route: 058
     Dates: start: 20140805, end: 201411

REACTIONS (3)
  - Uterine leiomyoma [Recovered/Resolved]
  - Cerebrovascular accident [Unknown]
  - Scar [Unknown]

NARRATIVE: CASE EVENT DATE: 201412
